FAERS Safety Report 4580946-4 (Version None)
Quarter: 2005Q1

REPORT INFORMATION
  Report Type: 
  Country: None (occurrence: None)
  Receive Date: 20050214
  Receipt Date: 20040630
  Transmission Date: 20050727
  Serious: No
  Sender: FDA-Public Use
  Company Number: US-GLAXOSMITHKLINE-A0516633A

PATIENT
  Age: 47 Year
  Sex: Female

DRUGS (6)
  1. LAMICTAL [Suspect]
     Indication: BIPOLAR DISORDER
     Dosage: 100MG PER DAY
     Route: 048
  2. PROZAC [Concomitant]
  3. THYROID REPLACEMENT [Concomitant]
  4. TRAZODONE [Concomitant]
  5. ADDERALL 10 [Concomitant]
  6. ORAL CONTRACEPTIVES [Concomitant]

REACTIONS (4)
  - APATHY [None]
  - FATIGUE [None]
  - MENSTRUATION IRREGULAR [None]
  - THYROID FUNCTION TEST ABNORMAL [None]
